FAERS Safety Report 23186010 (Version 2)
Quarter: 2023Q4

REPORT INFORMATION
  Report Type: Spontaneous
  Country: US (occurrence: US)
  Receive Date: 20231115
  Receipt Date: 20231116
  Transmission Date: 20240110
  Serious: Yes (Life-Threatening, Hospitalization, Other)
  Sender: FDA-Public Use
  Company Number: US-PFIZER INC-PV202300183347

PATIENT
  Age: 62 Year
  Sex: Female
  Weight: 65 kg

DRUGS (14)
  1. FENTANYL CITRATE [Interacting]
     Active Substance: FENTANYL CITRATE
     Indication: Induction and maintenance of anaesthesia
     Dosage: 15 UG/KG/HR
     Route: 042
  2. FENTANYL CITRATE [Interacting]
     Active Substance: FENTANYL CITRATE
     Dosage: 1 MG
     Route: 042
  3. FENTANYL CITRATE [Interacting]
     Active Substance: FENTANYL CITRATE
     Dosage: 7 UG/KG/HR
     Route: 042
  4. FENTANYL CITRATE [Interacting]
     Active Substance: FENTANYL CITRATE
     Dosage: 4 MG
     Route: 042
  5. MIDAZOLAM [Interacting]
     Active Substance: MIDAZOLAM
     Indication: Induction and maintenance of anaesthesia
     Dosage: 30 UG/KG/HR
     Route: 042
  6. MIDAZOLAM [Interacting]
     Active Substance: MIDAZOLAM
     Dosage: 5 MG
     Route: 042
  7. MIDAZOLAM [Interacting]
     Active Substance: MIDAZOLAM
     Dosage: 15 UG/KG/HR
     Route: 042
  8. MIDAZOLAM [Interacting]
     Active Substance: MIDAZOLAM
     Dosage: 11 MG
     Route: 042
  9. PHENELZINE SULFATE [Interacting]
     Active Substance: PHENELZINE SULFATE
     Indication: Depression
     Dosage: 15 MG, 2X/DAY
  10. VECURONIUM [Concomitant]
     Active Substance: VECURONIUM BROMIDE
     Dosage: 0.15 MG/KG
     Route: 042
  11. VECURONIUM [Concomitant]
     Active Substance: VECURONIUM BROMIDE
     Dosage: 4 MG
     Route: 042
  12. DIGOXIN [Concomitant]
     Active Substance: DIGOXIN
     Dosage: 0.5 MG LOADING DOSE
  13. ESMOLOL [Concomitant]
     Active Substance: ESMOLOL HYDROCHLORIDE
     Dosage: 10-MG INCREMENTAL DOSES UP TO A TOTAL OF 100 MG
     Route: 042
  14. SODIUM NITROPRUSSIDE [Concomitant]
     Active Substance: SODIUM NITROPRUSSIDE
     Indication: Blood pressure fluctuation
     Dosage: 8 UG/KG/MIN (TOTAL DOSE OF 39.5 MG OVER 82 MIN DURATION OF CPB)
     Route: 042

REACTIONS (4)
  - Product use issue [Recovered/Resolved]
  - Supraventricular tachycardia [Recovered/Resolved]
  - Hypertension [Recovered/Resolved]
  - Drug interaction [Recovered/Resolved]
